FAERS Safety Report 15865755 (Version 1)
Quarter: 2019Q1

REPORT INFORMATION
  Report Type: Spontaneous
  Country: FR (occurrence: FR)
  Receive Date: 20190125
  Receipt Date: 20190125
  Transmission Date: 20190417
  Serious: Yes (Life-Threatening)
  Sender: FDA-Public Use
  Company Number: FR-TEVA-2019-FR-1003286

PATIENT
  Age: 5 Decade
  Sex: Female

DRUGS (22)
  1. PREDNISONE. [Suspect]
     Active Substance: PREDNISONE
     Indication: ARRHYTHMIA
     Dosage: 1 MG/KG DAILY;
     Route: 065
  2. PREDNISONE. [Suspect]
     Active Substance: PREDNISONE
     Indication: ATRIAL FIBRILLATION
  3. DIGOXIN. [Suspect]
     Active Substance: DIGOXIN
     Indication: ATRIAL FIBRILLATION
  4. PREDNISONE. [Suspect]
     Active Substance: PREDNISONE
     Indication: SYSTEMIC SCLERODERMA
     Dosage: .5 MG/KG DAILY; WITH RAPID DECREASE; LATER ADMINISTERED AS 5 MG/DAY
     Route: 065
     Dates: start: 201408
  5. PREDNISONE. [Suspect]
     Active Substance: PREDNISONE
     Indication: MYOCARDIAL FIBROSIS
     Dosage: 5 MILLIGRAM DAILY; LATER ADMINISTERED AS 1 MG/KG/DAY
     Route: 065
  6. PREDNISONE. [Suspect]
     Active Substance: PREDNISONE
     Indication: SYSTOLIC DYSFUNCTION
  7. COLCHICINE. [Suspect]
     Active Substance: COLCHICINE
     Indication: PERICARDIAL EFFUSION
  8. DIGOXIN. [Suspect]
     Active Substance: DIGOXIN
     Indication: PERICARDITIS
  9. PREDNISONE. [Suspect]
     Active Substance: PREDNISONE
     Indication: CONGESTIVE CARDIOMYOPATHY
  10. PREDNISONE. [Suspect]
     Active Substance: PREDNISONE
     Indication: CARDIAC TAMPONADE
  11. DIGOXIN. [Suspect]
     Active Substance: DIGOXIN
     Indication: SYSTEMIC SCLERODERMA
     Route: 065
  12. DIGOXIN. [Suspect]
     Active Substance: DIGOXIN
     Indication: SYSTOLIC DYSFUNCTION
  13. DIGOXIN. [Suspect]
     Active Substance: DIGOXIN
     Indication: CARDIAC TAMPONADE
  14. RITUXIMAB. [Suspect]
     Active Substance: RITUXIMAB
     Indication: SYSTEMIC SCLERODERMA
     Route: 065
     Dates: start: 201502
  15. PREDNISONE. [Suspect]
     Active Substance: PREDNISONE
     Indication: PERICARDITIS
  16. COLCHICINE. [Suspect]
     Active Substance: COLCHICINE
     Indication: SYSTEMIC SCLERODERMA
     Dosage: 1 MILLIGRAM DAILY;
     Route: 065
     Dates: start: 201408
  17. DIGOXIN. [Suspect]
     Active Substance: DIGOXIN
     Indication: CONGESTIVE CARDIOMYOPATHY
  18. DIGOXIN. [Suspect]
     Active Substance: DIGOXIN
     Indication: PERICARDIAL EFFUSION
  19. METHOTREXATE. [Suspect]
     Active Substance: METHOTREXATE
     Indication: SYSTEMIC SCLERODERMA
     Route: 065
  20. PREDNISONE. [Suspect]
     Active Substance: PREDNISONE
     Indication: PERICARDIAL EFFUSION
  21. DIGOXIN. [Suspect]
     Active Substance: DIGOXIN
     Indication: MYOCARDIAL FIBROSIS
  22. DIGOXIN. [Suspect]
     Active Substance: DIGOXIN
     Indication: ARRHYTHMIA

REACTIONS (1)
  - Drug ineffective [Unknown]
